FAERS Safety Report 5619618-3 (Version None)
Quarter: 2008Q1

REPORT INFORMATION
  Report Type: 
  Country: None (occurrence: None)
  Receive Date: 20080205
  Receipt Date: 20080205
  Transmission Date: 20080703
  Serious: No
  Sender: FDA-Public Use
  Company Number: None

PATIENT
  Age: 45 Year
  Sex: Male
  Weight: 78.0187 kg

DRUGS (2)
  1. CHANTIX [Suspect]
     Indication: SMOKING CESSATION THERAPY
     Dosage: .5MG 2 PO
     Dates: start: 20071125, end: 20071202
  2. CHANTIX [Suspect]
     Indication: SMOKING CESSATION THERAPY
     Dosage: 1MG 2 PO
     Route: 048
     Dates: start: 20071203, end: 20071216

REACTIONS (9)
  - ALCOHOL USE [None]
  - ANXIETY [None]
  - DYSGEUSIA [None]
  - FEELING ABNORMAL [None]
  - INSOMNIA [None]
  - LIBIDO INCREASED [None]
  - PANIC DISORDER [None]
  - WEIGHT DECREASED [None]
  - WITHDRAWAL SYNDROME [None]
